FAERS Safety Report 10332279 (Version 1)
Quarter: 2014Q3

REPORT INFORMATION
  Report Type: Spontaneous
  Country: US (occurrence: None)
  Receive Date: 20140721
  Receipt Date: 20140721
  Transmission Date: 20150326
  Serious: Yes (Life-Threatening, Disabling, Other)
  Sender: FDA-Public Use
  Company Number: None

PATIENT
  Age: 46 Year
  Sex: Female
  Weight: 99.79 kg

DRUGS (1)
  1. VIIBRYD [Suspect]
     Active Substance: VILAZODONE HYDROCHLORIDE
     Indication: DEPRESSION
     Dosage: 1X DAY ONCE DAILY
     Route: 048
     Dates: start: 20140521, end: 20140612

REACTIONS (3)
  - Crying [None]
  - Serotonin syndrome [None]
  - Paranoia [None]

NARRATIVE: CASE EVENT DATE: 20140612
